FAERS Safety Report 15546811 (Version 2)
Quarter: 2018Q4

REPORT INFORMATION
  Report Type: Spontaneous
  Country: US (occurrence: US)
  Receive Date: 20181024
  Receipt Date: 20181029
  Transmission Date: 20190205
  Serious: Yes (Hospitalization, Other)
  Sender: FDA-Public Use
  Company Number: US-UNITED THERAPEUTICS-UNT-2018-017226

PATIENT
  Age: 70 Year
  Sex: Female
  Weight: 78.5 kg

DRUGS (3)
  1. ADEMPAS [Concomitant]
     Active Substance: RIOCIGUAT
     Indication: PRODUCT USED FOR UNKNOWN INDICATION
     Route: 065
  2. AMLODIPINE [Concomitant]
     Active Substance: AMLODIPINE BESYLATE
     Indication: PRODUCT USED FOR UNKNOWN INDICATION
     Route: 065
  3. REMODULIN [Suspect]
     Active Substance: TREPROSTINIL
     Indication: PULMONARY ARTERIAL HYPERTENSION
     Dosage: 0.02825 ?G/KG, CONTINUING
     Route: 041
     Dates: start: 20171212

REACTIONS (5)
  - Device dislocation [Recovered/Resolved]
  - Vascular device infection [Unknown]
  - Injection site pain [Unknown]
  - Sepsis [Unknown]
  - Injection site induration [Unknown]

NARRATIVE: CASE EVENT DATE: 2018
